FAERS Safety Report 24466883 (Version 1)
Quarter: 2024Q4

REPORT INFORMATION
  Report Type: Spontaneous
  Country: US (occurrence: US)
  Receive Date: 20241018
  Receipt Date: 20241018
  Transmission Date: 20250115
  Serious: Yes (Hospitalization)
  Sender: BRISTOL-MYERS SQUIBB COMPANY
  Company Number: US-BRISTOL-MYERS SQUIBB COMPANY-2024-163976

PATIENT
  Age: 75 Year
  Sex: Female
  Weight: 67.13 kg

DRUGS (1)
  1. ELIQUIS [Suspect]
     Active Substance: APIXABAN
     Indication: Aortic stenosis
     Route: 048

REACTIONS (2)
  - Urinary tract infection [Unknown]
  - Off label use [Unknown]
